FAERS Safety Report 5031114-3 (Version None)
Quarter: 2006Q2

REPORT INFORMATION
  Report Type: 
  Country: None (occurrence: None)
  Receive Date: 20060621
  Receipt Date: 20051017
  Transmission Date: 20061013
  Serious: Yes (Hospitalization)
  Sender: FDA-Public Use
  Company Number: JP-BRISTOL-MYERS SQUIBB COMPANY-13146469

PATIENT
  Age: 31 Year
  Sex: Female
  Weight: 52 kg

DRUGS (18)
  1. ENTECAVIR [Suspect]
     Indication: HEPATITIS B
     Route: 048
     Dates: start: 20041215
  2. FLONASE [Concomitant]
     Indication: RHINITIS ALLERGIC
     Dosage: 4 ML SOLUTION NASAL INHALER.
     Route: 045
     Dates: start: 20050511, end: 20051231
  3. ITRIZOLE [Concomitant]
     Indication: NAIL TINEA
     Dosage: 50 MG CAPSULES;4X2/DAY, 21-SEP-2005TO27-SEP-2005, 19-OCT-2005TO26-OCT-2005, 14-NOV-2005TO20-NOV-2005
     Route: 048
     Dates: start: 20050921, end: 20051120
  4. CEFZON [Concomitant]
     Indication: SINUSITIS
     Route: 048
     Dates: start: 20060405, end: 20060407
  5. CEFZON [Concomitant]
     Indication: NASOPHARYNGITIS
     Route: 048
     Dates: start: 20060405, end: 20060407
  6. MUCOSTA [Concomitant]
     Indication: NASOPHARYNGITIS
     Route: 048
     Dates: start: 20060405, end: 20060407
  7. MUCOSTA [Concomitant]
     Indication: SINUSITIS
     Route: 048
     Dates: start: 20060405, end: 20060407
  8. DAZEN [Concomitant]
     Indication: SINUSITIS
     Route: 048
     Dates: start: 20060404, end: 20060407
  9. DAZEN [Concomitant]
     Indication: NASOPHARYNGITIS
     Route: 048
     Dates: start: 20060404, end: 20060407
  10. PURSENNIDE [Concomitant]
     Indication: ULTRASOUND ABDOMEN
     Route: 048
     Dates: start: 20060404, end: 20060404
  11. GASCON [Concomitant]
     Indication: ULTRASOUND ABDOMEN
     Route: 048
     Dates: start: 20060404, end: 20060404
  12. KLARICID [Concomitant]
     Indication: SINUSITIS
     Route: 048
     Dates: start: 20051012, end: 20051018
  13. MUCODYNE [Concomitant]
     Indication: SINUSITIS
     Route: 048
     Dates: start: 20051012, end: 20051018
  14. ALLEGRA [Concomitant]
     Indication: RHINITIS ALLERGIC
     Route: 048
     Dates: start: 20051012, end: 20051018
  15. PARIET [Concomitant]
     Indication: GASTROOESOPHAGEAL REFLUX DISEASE
     Route: 048
     Dates: start: 20051015, end: 20051018
  16. LIVOSTIN [Concomitant]
     Indication: RHINITIS ALLERGIC
     Route: 045
     Dates: start: 20051021, end: 20051231
  17. ALLELOCK [Concomitant]
     Indication: RHINITIS ALLERGIC
     Route: 048
     Dates: start: 20051027, end: 20051123
  18. MENTAX [Concomitant]
     Indication: NAIL TINEA
     Route: 062
     Dates: start: 20050314

REACTIONS (1)
  - MENIERE'S DISEASE [None]
